FAERS Safety Report 6663267-5 (Version None)
Quarter: 2010Q2

REPORT INFORMATION
  Report Type: 
  Country: None (occurrence: None)
  Receive Date: 20100401
  Receipt Date: 20100323
  Transmission Date: 20101027
  Serious: Yes (Hospitalization)
  Sender: FDA-Public Use
  Company Number: CN-ASTRAZENECA-2010SE13199

PATIENT

DRUGS (1)
  1. PULMICORT RESPULES [Suspect]
     Indication: NASAL POLYPS
     Dosage: 1 MG/2ML WAS DILUTED BY 0.9% NORMAL SALIN 2 ML
     Route: 055

REACTIONS (2)
  - MEDICATION ERROR [None]
  - NASAL SEPTUM PERFORATION [None]
